FAERS Safety Report 5270742-7 (Version None)
Quarter: 2007Q1

REPORT INFORMATION
  Report Type: 
  Country: None (occurrence: None)
  Receive Date: 20070319
  Receipt Date: 20070319
  Transmission Date: 20070707
  Serious: Yes (Other)
  Sender: FDA-Public Use
  Company Number: None

PATIENT
  Sex: Male
  Weight: 83.0083 kg

DRUGS (1)
  1. TRASYLOL [Suspect]
     Indication: HAEMORRHAGE CONTROL
     Dates: start: 20070130, end: 20070130

REACTIONS (2)
  - PROCEDURAL COMPLICATION [None]
  - RENAL FAILURE ACUTE [None]
